FAERS Safety Report 7474976-2 (Version None)
Quarter: 2011Q1

REPORT INFORMATION
  Report Type: 
  Country: None (occurrence: None)
  Receive Date: 20110302
  Receipt Date: 20100914
  Transmission Date: 20110831
  Serious: Yes (Hospitalization)
  Sender: FDA-Public Use
  Company Number: 163-21880-10091380

PATIENT
  Age: 67 Year
  Sex: Female

DRUGS (2)
  1. REVLIMID [Suspect]
     Indication: HEPATIC NEOPLASM MALIGNANT
     Dosage: 20 MG, 2 IN 1 D, PO; 25 MG, DAILY X 21 DAYS, PO
     Route: 048
     Dates: start: 20100701
  2. REVLIMID [Suspect]
     Indication: HEPATIC NEOPLASM MALIGNANT
     Dosage: 20 MG, 2 IN 1 D, PO; 25 MG, DAILY X 21 DAYS, PO
     Route: 048
     Dates: start: 20100614

REACTIONS (1)
  - HEPATIC FAILURE [None]
